FAERS Safety Report 7221114-7 (Version None)
Quarter: 2011Q1

REPORT INFORMATION
  Report Type: 
  Country: None (occurrence: None)
  Receive Date: 20110112
  Receipt Date: 20110105
  Transmission Date: 20110831
  Serious: No
  Sender: FDA-Public Use
  Company Number: US-PFIZER INC-2011002987

PATIENT
  Sex: Female
  Weight: 73.469 kg

DRUGS (4)
  1. ZITHROMAX [Suspect]
     Indication: NASOPHARYNGITIS
  2. ZOCOR [Concomitant]
     Indication: BLOOD CHOLESTEROL INCREASED
     Dosage: 30 MG, 1X/DAY
     Route: 048
  3. ZITHROMAX [Suspect]
     Indication: COUGH
     Dosage: 250 MG, 1X/DAY
     Route: 048
     Dates: start: 20110103
  4. PRILOSEC [Concomitant]
     Indication: DYSPEPSIA
     Dosage: 20 MG, 1X/DAY
     Route: 048

REACTIONS (1)
  - DIARRHOEA [None]
